FAERS Safety Report 22389670 (Version 2)
Quarter: 2025Q1

REPORT INFORMATION
  Report Type: Spontaneous
  Country: US (occurrence: US)
  Receive Date: 20230531
  Receipt Date: 20250131
  Transmission Date: 20250409
  Serious: No
  Sender: LUPIN
  Company Number: US-LUPIN PHARMACEUTICALS INC.-2023-04163

PATIENT

DRUGS (2)
  1. ALBUTEROL SULFATE [Suspect]
     Active Substance: ALBUTEROL SULFATE
     Indication: Dyspnoea
  2. INSULIN NOS [Concomitant]
     Active Substance: INSULIN NOS
     Indication: Diabetes mellitus
     Route: 065

REACTIONS (6)
  - Drug dose omission by device [Unknown]
  - Product use in unapproved indication [Unknown]
  - Device dispensing error [Unknown]
  - Wrong technique in product usage process [Unknown]
  - Expired device used [Unknown]
  - No adverse event [Unknown]

NARRATIVE: CASE EVENT DATE: 20230523
